FAERS Safety Report 7759539-3 (Version None)
Quarter: 2011Q3

REPORT INFORMATION
  Report Type: 
  Country: None (occurrence: None)
  Receive Date: 20110919
  Receipt Date: 20110919
  Transmission Date: 20111222
  Serious: Yes (Life-Threatening, Hospitalization)
  Sender: FDA-Public Use
  Company Number: None

PATIENT
  Age: 81 Year
  Sex: Female
  Weight: 77.11 kg

DRUGS (1)
  1. NITROFURANTOIN [Suspect]
     Indication: CYSTITIS
     Dosage: 1
     Dates: start: 20110831, end: 20110905

REACTIONS (7)
  - ABASIA [None]
  - FEELING ABNORMAL [None]
  - LUNG DISORDER [None]
  - MALAISE [None]
  - DYSPNOEA [None]
  - HEART RATE ABNORMAL [None]
  - SCAR [None]
